FAERS Safety Report 9547281 (Version 1)
Quarter: 2013Q2

REPORT INFORMATION
  Report Type: Spontaneous
  Country: US (occurrence: None)
  Receive Date: 20130606
  Receipt Date: 20130606
  Transmission Date: 20140414
  Serious: No
  Sender: FDA-Public Use
  Company Number: 2013PROUSA02537

PATIENT
  Age: 89 Year
  Sex: Male
  Weight: 94.8 kg

DRUGS (9)
  1. PROVENGE (SIPULEUCEL-T SUSPENSION, 250ML [Suspect]
     Indication: PROSTATE CANCER METASTATIC
     Dosage: 250 ML, SINGLE, INTRAVENOUS
     Route: 042
     Dates: start: 20130125, end: 20130125
  2. ZGEVA (DENOSUMAB) [Concomitant]
  3. ATENOLOL/CHLORTHALID [Concomitant]
  4. TERAZOSIN HCL (TERAZOSIN HYDROCHLORIDE) [Concomitant]
  5. WARFARIN SODIUM (WARFARIN SODIUM) [Concomitant]
  6. SIMVASTIN (SIMVASTATIN) [Concomitant]
  7. FINASTERIDE (FINASTERIDE) [Concomitant]
  8. AMILORIDE (AMILORIDE HYDROCHLORIDE) [Concomitant]
  9. OMEPRAZOLE (OMEPRAZOLE) [Concomitant]

REACTIONS (4)
  - Influenza [None]
  - Fall [None]
  - Dehydration [None]
  - Diarrhoea [None]
